FAERS Safety Report 8437481-2 (Version None)
Quarter: 2012Q2

REPORT INFORMATION
  Report Type: 
  Country: None (occurrence: None)
  Receive Date: 20120614
  Receipt Date: 20120402
  Transmission Date: 20120825
  Serious: No
  Sender: FDA-Public Use
  Company Number: US-AMGEN-USASP2011018442

PATIENT
  Age: 65 Year
  Sex: Female

DRUGS (4)
  1. VITAMIN D [Concomitant]
  2. PREDNISONE TAB [Concomitant]
  3. PROLIA [Suspect]
     Indication: OSTEOPOROSIS
     Dosage: 60 MG, Q6MO
     Route: 058
     Dates: start: 20101029
  4. CALCIUM [Concomitant]

REACTIONS (4)
  - PAIN IN JAW [None]
  - MUSCULOSKELETAL PAIN [None]
  - CHEST PAIN [None]
  - BACK PAIN [None]
